FAERS Safety Report 7404380-4 (Version None)
Quarter: 2011Q2

REPORT INFORMATION
  Report Type: 
  Country: None (occurrence: None)
  Receive Date: 20110408
  Receipt Date: 20090930
  Transmission Date: 20111010
  Serious: Yes (Hospitalization, Disabling, Other)
  Sender: FDA-Public Use
  Company Number: US-BAYER-2011-005369

PATIENT
  Sex: Male
  Weight: 88.435 kg

DRUGS (13)
  1. RED BLOOD CELLS [Concomitant]
     Dosage: 1 U, UNK
     Route: 042
     Dates: start: 20060414, end: 20060414
  2. INSULIN [Concomitant]
     Dosage: 17 U, UNK
     Route: 042
     Dates: start: 20060414, end: 20060414
  3. ALLOPURINOL [Concomitant]
     Dosage: UNK
     Route: 048
     Dates: start: 20060101
  4. ASPIRIN [Concomitant]
     Dosage: 81 MG, QD
  5. NITROGLYCERIN [Concomitant]
     Dosage: UNK
     Route: 042
     Dates: start: 20060414, end: 20060414
  6. FENTANYL [Concomitant]
     Dosage: 13 ML, UNK
     Route: 042
     Dates: start: 20060414, end: 20060414
  7. TRASYLOL,TRASYLOL [Suspect]
     Indication: CORONARY REVASCULARISATION
     Dosage: UNK
     Route: 042
     Dates: start: 20060414, end: 20060414
  8. VERSED [Concomitant]
     Dosage: 9 MG, UNK
     Route: 042
     Dates: start: 20060414, end: 20060414
  9. PLATELETS [Concomitant]
     Dosage: 1 U, UNK
     Route: 042
     Dates: start: 20060414, end: 20060414
  10. ANCEF [Concomitant]
     Dosage: 1 G, UNK
     Route: 042
     Dates: start: 20060414, end: 20060414
  11. TRASYLOL,TRASYLOL [Suspect]
     Indication: VASCULAR GRAFT
  12. TOPROL-XL [Concomitant]
     Dosage: 100 MG, QD
     Route: 048
     Dates: start: 20060101
  13. ANCEF [Concomitant]
     Dosage: 2 G, UNK
     Route: 042
     Dates: start: 20060414, end: 20060414

REACTIONS (14)
  - ANHEDONIA [None]
  - DISABILITY [None]
  - ANXIETY [None]
  - FEAR OF DEATH [None]
  - UNEVALUABLE EVENT [None]
  - NERVOUSNESS [None]
  - RENAL FAILURE [None]
  - INJURY [None]
  - PAIN [None]
  - EMOTIONAL DISTRESS [None]
  - RENAL INJURY [None]
  - MULTI-ORGAN FAILURE [None]
  - FEAR [None]
  - DEPRESSION [None]
